FAERS Safety Report 7699566-8 (Version None)
Quarter: 2011Q3

REPORT INFORMATION
  Report Type: 
  Country: None (occurrence: None)
  Receive Date: 20110822
  Receipt Date: 20110811
  Transmission Date: 20111222
  Serious: Yes (Hospitalization)
  Sender: FDA-Public Use
  Company Number: US-BIOGENIDEC-2011BI004363

PATIENT
  Age: 66 Year
  Sex: Female
  Weight: 78 kg

DRUGS (8)
  1. BACLOFEN [Concomitant]
     Indication: MULTIPLE SCLEROSIS
     Route: 048
  2. KLONOPIN [Concomitant]
     Indication: CLAUSTROPHOBIA
     Route: 048
  3. NEXIUM [Concomitant]
     Route: 048
  4. TYSABRI [Suspect]
     Indication: MULTIPLE SCLEROSIS
     Route: 042
     Dates: start: 20060911, end: 20101215
  5. LOVENOX [Concomitant]
  6. KLONOPIN [Concomitant]
     Indication: ANXIETY
     Route: 048
  7. CALCITONIN SALMON [Concomitant]
     Route: 045
  8. FLOVENT [Concomitant]
     Route: 055

REACTIONS (7)
  - PNEUMONIA [None]
  - MUSCLE TIGHTNESS [None]
  - HEPATIC NEOPLASM MALIGNANT [None]
  - CLOSTRIDIUM DIFFICILE COLITIS [None]
  - MULTIPLE SCLEROSIS RELAPSE [None]
  - ATRIAL FIBRILLATION [None]
  - URINARY TRACT INFECTION STAPHYLOCOCCAL [None]
